FAERS Safety Report 17820585 (Version 3)
Quarter: 2020Q3

REPORT INFORMATION
  Report Type: Spontaneous
  Country: US (occurrence: US)
  Receive Date: 20200525
  Receipt Date: 20200716
  Transmission Date: 20201102
  Serious: No
  Sender: FDA-Public Use
  Company Number: US-JNJFOC-20200512188

PATIENT
  Sex: Male

DRUGS (1)
  1. ROGAINE [Suspect]
     Active Substance: MINOXIDIL
     Indication: PRODUCT USED FOR UNKNOWN INDICATION
     Route: 065

REACTIONS (2)
  - Drug ineffective [Unknown]
  - Hair texture abnormal [Unknown]
